FAERS Safety Report 5164320-8 (Version None)
Quarter: 2006Q4

REPORT INFORMATION
  Report Type: 
  Country: None (occurrence: None)
  Receive Date: 20061127
  Receipt Date: 20061127
  Transmission Date: 20070319
  Serious: Yes (Hospitalization)
  Sender: FDA-Public Use
  Company Number: None

PATIENT
  Age: 53 Year
  Sex: Male

DRUGS (6)
  1. CYCLOSPORINE [Suspect]
     Indication: RENAL FAILURE CHRONIC
     Dosage: 50 IN AM, 100 MG IN PM BID PO
     Route: 048
  2. CYCLOSPORINE [Suspect]
     Indication: RENAL TRANSPLANT
     Dosage: 50 IN AM, 100 MG IN PM BID PO
     Route: 048
  3. LASIX [Concomitant]
  4. LISINOPRIL [Concomitant]
  5. HYDROCHLOROTHIAZIDE [Concomitant]
  6. PREDNISONE TAB [Concomitant]

REACTIONS (2)
  - GOUTY ARTHRITIS [None]
  - HYPERURICAEMIA [None]
